FAERS Safety Report 25387222 (Version 2)
Quarter: 2025Q4

REPORT INFORMATION
  Report Type: Spontaneous
  Country: JP (occurrence: JP)
  Receive Date: 20250602
  Receipt Date: 20251104
  Transmission Date: 20260117
  Serious: Yes (Hospitalization, Other)
  Sender: ELI LILLY AND COMPANY
  Company Number: JP-ELI_LILLY_AND_COMPANY-JP202505022021

PATIENT
  Age: 21 Year
  Sex: Female
  Weight: 87.6 kg

DRUGS (5)
  1. MOUNJARO [Suspect]
     Active Substance: TIRZEPATIDE
     Indication: Type 2 diabetes mellitus
     Dosage: UNK
     Route: 065
  2. MOUNJARO [Suspect]
     Active Substance: TIRZEPATIDE
     Dosage: 15 MG
     Route: 058
  3. LYUMJEV JUNIOR [Concomitant]
     Indication: Type 2 diabetes mellitus
     Route: 058
  4. INSULIN GLARGINE BS LILLY [Concomitant]
     Indication: Type 2 diabetes mellitus
     Route: 058
  5. METFORMIN HYDROCHLORIDE [Concomitant]
     Active Substance: METFORMIN HYDROCHLORIDE
     Indication: Type 2 diabetes mellitus
     Dosage: 1500 MG
     Route: 065

REACTIONS (4)
  - Hypertriglyceridaemia [Unknown]
  - Diabetic ketoacidosis [Recovered/Resolved]
  - Pseudohyponatraemia [Unknown]
  - Pancreatitis [Recovered/Resolved]
